FAERS Safety Report 8720186 (Version 2)
Quarter: 2013Q1

REPORT INFORMATION
  Report Type: Spontaneous
  Country: US (occurrence: US)
  Receive Date: 20120813
  Receipt Date: 20130114
  Transmission Date: 20140127
  Serious: Yes (Hospitalization)
  Sender: FDA-Public Use
  Company Number: US-BAYER-2012-080946

PATIENT
  Age: 31 Year
  Sex: Female
  Weight: 158.73 kg

DRUGS (37)
  1. YASMIN [Suspect]
     Indication: PREMENSTRUAL DYSPHORIC DISORDER
     Dosage: UNK
     Dates: start: 200701, end: 200807
  2. YASMIN [Suspect]
     Indication: MENSTRUATION IRREGULAR
  3. YASMIN [Suspect]
     Indication: CONTRACEPTION
  4. OCELLA [Suspect]
     Indication: PREMENSTRUAL DYSPHORIC DISORDER
     Dosage: UNK
     Dates: start: 200807, end: 201006
  5. OCELLA [Suspect]
     Indication: MENSTRUATION IRREGULAR
  6. LEVOTHYROXINE [Concomitant]
     Dosage: 0.125 MCG
     Dates: start: 200608
  7. SPIRONOLACTONE [Concomitant]
     Dosage: 100 MG, BID
     Dates: start: 2007
  8. BROMOCRIPTINE [Concomitant]
     Dosage: 2.5MG, 2 TABLETS NIGHTLY
  9. ACETAMINOPHEN [Concomitant]
     Dosage: UNK UNK, PRN
  10. IBUPROFEN [Concomitant]
     Dosage: UNK UNK, PRN
     Dates: start: 200608
  11. PREDNISONE [Concomitant]
     Indication: ASTHMA
     Dosage: UNK
     Dates: start: 2010
  12. PROVENTIL [Concomitant]
     Indication: ASTHMA
     Dosage: UNK
     Dates: start: 2010
  13. WELLBUTRIN [Concomitant]
     Indication: DEPRESSION
     Dosage: UNK
     Dates: start: 2002
  14. FLONASE [Concomitant]
     Indication: NASAL CONGESTION
     Dosage: UNK
     Dates: start: 2010
  15. CYMBALTA [Concomitant]
     Indication: PAIN
     Dosage: UNK
     Dates: start: 2010
  16. VISTARIL [Concomitant]
     Indication: ANXIETY
     Dosage: UNK
     Dates: start: 2010
  17. LAMICTAL [Concomitant]
     Indication: BIPOLAR DISORDER
     Dosage: 200 MG, QD
     Dates: start: 2009
  18. SYNTHROID [Concomitant]
     Indication: HORMONE REPLACEMENT THERAPY
     Dosage: UNK
     Dates: start: 2006
  19. PRILOSEC [Concomitant]
     Indication: ANTACID THERAPY
     Dosage: 20 MG, QD
     Dates: start: 2011
  20. ZOFRAN [Concomitant]
     Indication: NAUSEA
     Dosage: UNK
     Dates: start: 2010
  21. MINIPRESS [Concomitant]
     Indication: ANXIETY
     Dosage: 1 MG, NIGHTLY
     Dates: start: 2010
  22. ULTRAM [Concomitant]
     Indication: PAIN
     Dosage: UNK
     Dates: start: 2008
  23. TRAZODONE [Concomitant]
     Indication: INSOMNIA
     Dosage: 100MG, 3 TABLETS NIGHTLY
     Dates: start: 2000
  24. CLONAZEPAM [Concomitant]
     Indication: ANXIETY
     Dosage: 2 MG, UNK
     Dates: start: 200912, end: 201005
  25. ABILIFY [Concomitant]
     Dosage: 5 MG, QD
  26. BUPROPION [Concomitant]
     Indication: DEPRESSION
     Dosage: 300 MG, QD
  27. TRAMADOL [Concomitant]
     Dosage: 50MG, 2 TABLETS TWICE DAILY AS NEEDED
  28. AMBIEN CR [Concomitant]
     Dosage: 12.5MG, 2 TABLETS NIGHTLY AS NEEDED FOR SLEEP
  29. OYST-CAL [Concomitant]
     Dosage: 500 MG, QD
  30. LITHIUM CARBONATE [Concomitant]
     Dosage: 300MG, 5 CAPSULES NIGHTLY
  31. PROZAC [Concomitant]
     Dosage: 20 MG, BID
  32. HYDROCODONE W/APAP [Concomitant]
     Dosage: 5 MG, UNK
  33. HYDROCODONE W/APAP [Concomitant]
     Dosage: 500 MG, UNK
  34. TOPAMAX [Concomitant]
     Dosage: 25 MG, 2 NIGHTLY
  35. ARTIFICIAL TEARS [ARTIFICIAL TEARS] [Concomitant]
  36. OXYCODONE [Concomitant]
     Indication: PAIN
     Dosage: 5 MG, UNK
  37. OXYCODONE [Concomitant]
     Indication: PAIN
     Dosage: 325 MG, UNK

REACTIONS (11)
  - Pulmonary embolism [None]
  - Injury [None]
  - General physical health deterioration [None]
  - Pain [None]
  - Back pain [None]
  - Emotional distress [None]
  - Pain [None]
  - Anxiety [None]
  - Dyspnoea [None]
  - Circulatory collapse [None]
  - Off label use [None]
